FAERS Safety Report 8607430 (Version 4)
Quarter: 2014Q2

REPORT INFORMATION
  Report Type: Spontaneous
  Country: US (occurrence: US)
  Receive Date: 20120611
  Receipt Date: 20140616
  Transmission Date: 20141212
  Serious: No
  Sender: FDA-Public Use
  Company Number: US-ASTRAZENECA-2012SE35146

PATIENT
  Age: 57 Year
  Sex: Female
  Weight: 63.5 kg

DRUGS (8)
  1. NEXIUM [Suspect]
     Indication: GASTROOESOPHAGEAL REFLUX DISEASE
     Route: 048
     Dates: start: 2001
  2. NEXIUM [Suspect]
     Indication: GASTROOESOPHAGEAL REFLUX DISEASE
     Route: 048
     Dates: start: 20080626
  3. NEXIUM [Suspect]
     Indication: GASTROOESOPHAGEAL REFLUX DISEASE
     Route: 048
     Dates: start: 20110203
  4. NEXIUM [Suspect]
     Indication: GASTROOESOPHAGEAL REFLUX DISEASE
     Route: 048
     Dates: start: 20120820
  5. RANITIDINE [Concomitant]
  6. MYLANTA [Concomitant]
  7. ASPIRIN [Concomitant]
     Dosage: EVERY DAY
  8. ESTROGEN [Concomitant]

REACTIONS (10)
  - Osteoporosis [Unknown]
  - Multiple fractures [Unknown]
  - Joint injury [Unknown]
  - Carpal tunnel syndrome [Unknown]
  - Aneurysm [Unknown]
  - Scoliosis [Unknown]
  - Depression [Unknown]
  - Arthritis [Unknown]
  - Osteopenia [Unknown]
  - Osteoarthritis [Unknown]
